FAERS Safety Report 9120104 (Version 4)
Quarter: 2013Q3

REPORT INFORMATION
  Report Type: Spontaneous
  Country: US (occurrence: US)
  Receive Date: 20130226
  Receipt Date: 20130725
  Transmission Date: 20140515
  Serious: No
  Sender: FDA-Public Use
  Company Number: US-009507513-1302USA011461

PATIENT
  Age: 57 Year
  Sex: Male

DRUGS (3)
  1. PEGINTRON [Suspect]
     Indication: HEPATITIS C
     Dosage: REDIPEN
     Dates: start: 20130208
  2. REBETOL [Suspect]
     Indication: HEPATITIS C
     Dosage: UNK
     Route: 048
     Dates: start: 20130208
  3. VICTRELIS [Suspect]
     Indication: HEPATITIS C
     Dosage: UNK
     Dates: start: 20130309

REACTIONS (9)
  - Increased appetite [Unknown]
  - Dehydration [Unknown]
  - Injection site reaction [Unknown]
  - Injection site pruritus [Unknown]
  - Fatigue [Unknown]
  - Dry mouth [Unknown]
  - Headache [Unknown]
  - Urticaria [Unknown]
  - Thirst [Unknown]
